FAERS Safety Report 7445177-9 (Version None)
Quarter: 2011Q2

REPORT INFORMATION
  Report Type: 
  Country: None (occurrence: None)
  Receive Date: 20110419
  Receipt Date: 20110404
  Transmission Date: 20111010
  Serious: Yes (Death, Other)
  Sender: FDA-Public Use
  Company Number: 2008-02110

PATIENT
  Age: 56 Year
  Sex: Female
  Weight: 51 kg

DRUGS (27)
  1. SENNA (SENNA) [Concomitant]
  2. AMBROXOL HYDROCHLORIDE (AMBROXOL HYDROCHLORIDE) [Concomitant]
  3. JUVELA NICOTINATE (TOCOPHERYL NICOTINATE) [Concomitant]
  4. MAGNESIUM OXIDE (MAGNESIUM OXIDE) [Concomitant]
  5. ACYCLOVIR [Concomitant]
  6. BIAPENEM (BIAPENEM) [Concomitant]
  7. DEXAMETHASONE [Suspect]
     Indication: MULTIPLE MYELOMA
     Dosage: 10 MG, CYCLIC,ORAL; 20 MG, CYCLIC, INTRAVENOUS; 10 MG, CYCLIC, ORAL; 20 MG,  CYCLIC, INTRAVENOUS
     Route: 048
     Dates: end: 20080424
  8. DEXAMETHASONE [Suspect]
     Indication: MULTIPLE MYELOMA
     Dosage: 10 MG, CYCLIC,ORAL; 20 MG, CYCLIC, INTRAVENOUS; 10 MG, CYCLIC, ORAL; 20 MG,  CYCLIC, INTRAVENOUS
     Route: 048
     Dates: start: 20071010, end: 20071102
  9. DEXAMETHASONE [Suspect]
     Indication: MULTIPLE MYELOMA
     Dosage: 10 MG, CYCLIC,ORAL; 20 MG, CYCLIC, INTRAVENOUS; 10 MG, CYCLIC, ORAL; 20 MG,  CYCLIC, INTRAVENOUS
     Route: 048
     Dates: end: 20071103
  10. DEXAMETHASONE [Suspect]
     Indication: MULTIPLE MYELOMA
     Dosage: 10 MG, CYCLIC,ORAL; 20 MG, CYCLIC, INTRAVENOUS; 10 MG, CYCLIC, ORAL; 20 MG,  CYCLIC, INTRAVENOUS
     Route: 048
     Dates: end: 20080512
  11. AMLODIPINE BESYLATE [Concomitant]
  12. LEVOFLOXACIN [Concomitant]
  13. ZOMETA [Concomitant]
  14. MEROPENEM [Concomitant]
  15. ALOSENN (TARAXACUM OFFICINALE, ACHILLEA, SENNA LEAF, RUBIA ROOT TINCTU [Concomitant]
  16. LASIX [Concomitant]
  17. ALLOPURINOL [Concomitant]
  18. DIFLUCAN [Concomitant]
  19. METHYCOBAL (MECOBALAMIN) [Concomitant]
  20. FAMOTIDINE [Concomitant]
  21. IMIPENEM (IMIPENEM) [Concomitant]
  22. TRANSAMIN (TRANEXAMIC ACID) [Concomitant]
  23. RED BLOOD CELLS [Concomitant]
  24. VELCADE [Suspect]
     Indication: MULTIPLE MYELOMA
     Dosage: 1.9 MG, CYCLIC, INTRAVENOUS; 1.5 MG, CYCLIC, INTRAVENOUS
     Route: 042
     Dates: start: 20080313, end: 20080512
  25. VELCADE [Suspect]
     Indication: MULTIPLE MYELOMA
     Dosage: 1.9 MG, CYCLIC, INTRAVENOUS; 1.5 MG, CYCLIC, INTRAVENOUS
     Route: 042
     Dates: start: 20071009, end: 20071102
  26. MUCOSTA (REBAMIPIDE) [Concomitant]
  27. ADONA (CARBAZOCHROME SODIUM SULFONATE) [Concomitant]

REACTIONS (11)
  - HYPOCALCAEMIA [None]
  - NEUROPATHY PERIPHERAL [None]
  - HOT FLUSH [None]
  - INTRACRANIAL HAEMATOMA [None]
  - ANAEMIA [None]
  - DIARRHOEA [None]
  - EPISTAXIS [None]
  - DISEASE PROGRESSION [None]
  - BRONCHITIS [None]
  - THROMBOCYTOPENIA [None]
  - HYPERURICAEMIA [None]
